FAERS Safety Report 14980390 (Version 1)
Quarter: 2018Q2

REPORT INFORMATION
  Report Type: Spontaneous
  Country: US (occurrence: US)
  Receive Date: 20180606
  Receipt Date: 20180606
  Transmission Date: 20180711
  Serious: Yes (Hospitalization, Other)
  Sender: FDA-Public Use
  Company Number: US-TAKEDA-2018TUS018782

PATIENT
  Age: 56 Year
  Sex: Female
  Weight: 38.54 kg

DRUGS (3)
  1. ENTYVIO [Suspect]
     Active Substance: VEDOLIZUMAB
     Indication: CROHN^S DISEASE
     Dosage: 300 MG, UNK
     Route: 042
     Dates: start: 2013, end: 20180302
  2. DIPHENOXYLATE [Concomitant]
     Active Substance: DIPHENOXYLATE
     Indication: DIARRHOEA
     Dosage: UNK
     Route: 048
  3. ATROPINE. [Concomitant]
     Active Substance: ATROPINE
     Indication: DIARRHOEA
     Dosage: UNK
     Route: 048

REACTIONS (4)
  - Post procedural complication [Unknown]
  - Procedural intestinal perforation [Unknown]
  - Colectomy [Recovering/Resolving]
  - Ileostomy [Recovering/Resolving]

NARRATIVE: CASE EVENT DATE: 20180305
